FAERS Safety Report 8603731-2 (Version None)
Quarter: 2012Q3

REPORT INFORMATION
  Report Type: 
  Country: None (occurrence: None)
  Receive Date: 20120817
  Receipt Date: 20120808
  Transmission Date: 20120928
  Serious: No
  Sender: FDA-Public Use
  Company Number: US-ASTRAZENECA-2012SE56112

PATIENT
  Sex: Male

DRUGS (1)
  1. METOPROLOL SUCCINATE [Suspect]
     Dosage: HALF OF THE TABLET IS TAKEN IN THE MORNING AND OTHER HALF TAKEN IN THE EVENING
     Route: 048

REACTIONS (2)
  - COELIAC DISEASE [None]
  - ABDOMINAL PAIN UPPER [None]
